FAERS Safety Report 4787051-2 (Version None)
Quarter: 2005Q4

REPORT INFORMATION
  Report Type: 
  Country: None (occurrence: None)
  Receive Date: 20051004
  Receipt Date: 20050929
  Transmission Date: 20060501
  Serious: Yes (Disabling)
  Sender: FDA-Public Use
  Company Number: JP-JNJFOC-20050904718

PATIENT
  Age: 82 Year
  Sex: Female

DRUGS (2)
  1. TAVANIC [Suspect]
     Route: 048
     Dates: start: 20050401, end: 20050401
  2. PARACETAMOL [Concomitant]
     Route: 048

REACTIONS (2)
  - DYSGEUSIA [None]
  - PAROSMIA [None]
